FAERS Safety Report 4790531-7 (Version None)
Quarter: 2005Q4

REPORT INFORMATION
  Report Type: 
  Country: None (occurrence: None)
  Receive Date: 20051005
  Receipt Date: 20050927
  Transmission Date: 20060501
  Serious: Yes (Death)
  Sender: FDA-Public Use
  Company Number: 2005S1000985

PATIENT
  Age: 57 Year
  Sex: Male
  Weight: 81.6475 kg

DRUGS (5)
  1. CLOZAPINE [Suspect]
     Indication: SCHIZOPHRENIA
     Dosage: SEE IMAGE
     Route: 048
     Dates: start: 20041012, end: 20050120
  2. CLOZAPINE [Suspect]
     Indication: SCHIZOPHRENIA
     Dosage: SEE IMAGE
     Route: 048
     Dates: start: 20041012, end: 20050120
  3. OLANZAPINE [Concomitant]
  4. LORAZEPAM [Concomitant]
  5. CLOMIPRAMINE HCL [Suspect]
     Dosage: 200 MG HS PO
     Route: 048

REACTIONS (7)
  - FALL [None]
  - LIMB INJURY [None]
  - LUNG INJURY [None]
  - OVERDOSE [None]
  - PNEUMONIA [None]
  - RIB FRACTURE [None]
  - SKELETAL INJURY [None]
